FAERS Safety Report 6230294-1 (Version None)
Quarter: 2009Q2

REPORT INFORMATION
  Report Type: 
  Country: None (occurrence: None)
  Receive Date: 20090615
  Receipt Date: 20090601
  Transmission Date: 20091009
  Serious: Yes (Other)
  Sender: FDA-Public Use
  Company Number: JP-GENENTECH-284527

PATIENT

DRUGS (1)
  1. RITUXIMAB [Suspect]
     Indication: NON-HODGKIN'S LYMPHOMA
     Dosage: 375 MG/M2, UNK
     Route: 065

REACTIONS (5)
  - DISEASE PROGRESSION [None]
  - FEBRILE NEUTROPENIA [None]
  - GINGIVITIS [None]
  - NEUTROPENIA [None]
  - THROMBOCYTOPENIA [None]
